FAERS Safety Report 8078338-9 (Version None)
Quarter: 2012Q1

REPORT INFORMATION
  Report Type: 
  Country: None (occurrence: None)
  Receive Date: 20120123
  Receipt Date: 20120112
  Transmission Date: 20120608
  Serious: Yes (Other)
  Sender: FDA-Public Use
  Company Number: 1000027074

PATIENT
  Age: 81 Year
  Sex: Male

DRUGS (8)
  1. ADVAIR (SERETIDE) (SERETIDE) [Concomitant]
  2. SPIRIVA (TIOTROPIUM BROMIDE) (TIOTROPIUM BROMIDE) [Concomitant]
  3. ASPIRIN [Concomitant]
  4. CARDIZEM [Concomitant]
  5. RANITIDINE [Concomitant]
  6. DALIRESP [Suspect]
     Indication: CHRONIC OBSTRUCTIVE PULMONARY DISEASE
     Dosage: 500 MCG (500 MCG,1 IN 1 D),ORAL
     Route: 048
     Dates: start: 20111003, end: 20111013
  7. PREDNISONE [Concomitant]
  8. FOSAMAX [Concomitant]

REACTIONS (5)
  - NIGHTMARE [None]
  - INSOMNIA [None]
  - AGGRESSION [None]
  - HALLUCINATION [None]
  - CONFUSIONAL STATE [None]
